FAERS Safety Report 8155544-6 (Version None)
Quarter: 2012Q1

REPORT INFORMATION
  Report Type: 
  Country: None (occurrence: None)
  Receive Date: 20120215
  Receipt Date: 20120203
  Transmission Date: 20120608
  Serious: Yes (Death)
  Sender: FDA-Public Use
  Company Number: 1000028309

PATIENT
  Age: 72 Year
  Sex: Male

DRUGS (5)
  1. LONARID (SOLPADEINE) (SOLPADEINE) [Concomitant]
  2. ROFLUMILAST (ROFLUMILAST) (TABLETS) [Suspect]
     Indication: CHRONIC OBSTRUCTIVE PULMONARY DISEASE
     Dosage: 1 DOSAGE FORMS (1 DOSAGE FORMS, 1 IN 1 D), ORAL
     Route: 048
     Dates: start: 20111101, end: 20111201
  3. SPIRIVA (TIOTROPIUM BROMIDE) (INHALANT) (TIOTROPIUM BROMIDE) [Concomitant]
  4. SERETIDE DISKUS (SERETIDE) (INHALANT) (SERETIDE) [Concomitant]
  5. DEPON (PARACETAMOL) (PARACETAMOL) [Concomitant]

REACTIONS (6)
  - CONDITION AGGRAVATED [None]
  - INFECTION [None]
  - CHRONIC OBSTRUCTIVE PULMONARY DISEASE [None]
  - PLEURITIC PAIN [None]
  - CARDIAC ARREST [None]
  - INFARCTION [None]
